FAERS Safety Report 5145984-1 (Version None)
Quarter: 2006Q4

REPORT INFORMATION
  Report Type: 
  Country: None (occurrence: None)
  Receive Date: 20061108
  Receipt Date: 20061027
  Transmission Date: 20070319
  Serious: Yes (Hospitalization)
  Sender: FDA-Public Use
  Company Number: FRWYE358227OCT06

PATIENT
  Age: 78 Year
  Sex: Female

DRUGS (1)
  1. ENBREL [Suspect]
     Indication: RHEUMATOID ARTHRITIS
     Route: 058
     Dates: start: 20060115, end: 20060515

REACTIONS (7)
  - ANAEMIA [None]
  - BLINDNESS [None]
  - BLINDNESS UNILATERAL [None]
  - INFLAMMATION [None]
  - LEUKOCYTOSIS [None]
  - OPTIC NEURITIS RETROBULBAR [None]
  - THROMBOCYTHAEMIA [None]
